FAERS Safety Report 4648655-0 (Version None)
Quarter: 2005Q2

REPORT INFORMATION
  Report Type: 
  Country: None (occurrence: None)
  Receive Date: 20050427
  Receipt Date: 20050415
  Transmission Date: 20051028
  Serious: Yes (Hospitalization, Other)
  Sender: FDA-Public Use
  Company Number: HQWYE081718APR05

PATIENT
  Age: 80 Year
  Sex: Female

DRUGS (3)
  1. CORDARONE [Suspect]
     Dosage: 200 MG 1X PER 1 DAY
     Route: 048
     Dates: start: 19970417
  2. DIGOXIN [Concomitant]
  3. WAFARIN (WARFARIN, ) [Suspect]
     Dosage: 4 MG 1X PER 1 DAY
     Route: 048
     Dates: start: 19970415

REACTIONS (3)
  - DRUG INTERACTION [None]
  - HAEMATOMA [None]
  - INTERNATIONAL NORMALISED RATIO INCREASED [None]
